FAERS Safety Report 12858478 (Version 1)
Quarter: 2016Q4

REPORT INFORMATION
  Report Type: Spontaneous
  Country: US (occurrence: US)
  Receive Date: 20161018
  Receipt Date: 20161018
  Transmission Date: 20170207
  Serious: No
  Sender: FDA-Public Use
  Company Number: US-BAYER-2016-200480

PATIENT
  Sex: Male

DRUGS (2)
  1. MIRALAX [Suspect]
     Active Substance: POLYETHYLENE GLYCOL 3350
  2. MIRAFIBER CAPLETS [Suspect]
     Active Substance: CITRIC ACID MONOHYDRATE\METHYLCELLULOSE

REACTIONS (3)
  - Dyschezia [None]
  - Faeces hard [Unknown]
  - Flatulence [Unknown]
